FAERS Safety Report 9811237 (Version 2)
Quarter: 2014Q1

REPORT INFORMATION
  Report Type: Spontaneous
  Country: US (occurrence: US)
  Receive Date: 20140110
  Receipt Date: 20140110
  Transmission Date: 20141002
  Serious: Yes (Other)
  Sender: FDA-Public Use
  Company Number: US-SANOFI-AVENTIS-2013SA021130

PATIENT
  Age: 64 Year
  Sex: Female
  Weight: 144 kg

DRUGS (8)
  1. PLAVIX [Suspect]
     Indication: PERCUTANEOUS CORONARY INTERVENTION
     Route: 048
     Dates: start: 20100820
  2. ASPIRIN [Suspect]
     Indication: CORONARY ARTERY DISEASE
     Route: 048
  3. ANTITHROMBOTIC AGENTS [Suspect]
     Indication: CARDIOVASCULAR DISORDER
     Route: 048
     Dates: start: 20130214, end: 20130218
  4. METOPROLOL [Concomitant]
  5. UNKNOWDRUG [Concomitant]
  6. LISINOPRIL [Concomitant]
  7. LIPITOR [Concomitant]
  8. LASIX [Concomitant]

REACTIONS (1)
  - Rectal haemorrhage [Recovered/Resolved]
